FAERS Safety Report 7750593 (Version 56)
Quarter: 2018Q3

REPORT INFORMATION
  Report Type: Report from Study
  Country: CA (occurrence: CA)
  Receive Date: 20110106
  Receipt Date: 20180712
  Transmission Date: 20181010
  Serious: Yes (Hospitalization, Other)
  Sender: FDA-Public Use
  Company Number: PHHY2010CA37641

PATIENT
  Age: 56 Year
  Sex: Female

DRUGS (2)
  1. PRAMIPEXOLE. [Suspect]
     Active Substance: PRAMIPEXOLE
     Indication: PRODUCT USED FOR UNKNOWN INDICATION
     Dosage: UNK
     Route: 065
     Dates: start: 201601
  2. SANDOSTATIN LAR DEPOT [Suspect]
     Active Substance: OCTREOTIDE ACETATE
     Indication: ACROMEGALY
     Dosage: 30 MG, QMO (ONCE A MONTH)
     Route: 030
     Dates: start: 20060802

REACTIONS (43)
  - Loss of consciousness [Recovering/Resolving]
  - Burn oral cavity [Unknown]
  - Chills [Unknown]
  - Anaemia [Unknown]
  - Palpitations [Recovered/Resolved]
  - Abdominal pain upper [Unknown]
  - Dizziness [Unknown]
  - Localised infection [Unknown]
  - Myocardial infarction [Unknown]
  - Thrombosis [Unknown]
  - Hypoacusis [Not Recovered/Not Resolved]
  - Gait disturbance [Unknown]
  - Memory impairment [Unknown]
  - Renal disorder [Recovered/Resolved]
  - Blood pressure increased [Unknown]
  - Abdominal pain [Unknown]
  - Vomiting [Recovering/Resolving]
  - Pharyngitis [Unknown]
  - Pyrexia [Unknown]
  - Pain in extremity [Recovered/Resolved]
  - Depression [Recovering/Resolving]
  - Plantar fasciitis [Unknown]
  - Arthralgia [Recovered/Resolved]
  - Vertigo [Unknown]
  - Crystal urine [Unknown]
  - Nasopharyngitis [Unknown]
  - Peripheral swelling [Unknown]
  - Pain [Not Recovered/Not Resolved]
  - Gout [Unknown]
  - Dyspnoea [Unknown]
  - Blood pressure systolic increased [Unknown]
  - Transient ischaemic attack [Unknown]
  - Bone pain [Unknown]
  - Influenza [Not Recovered/Not Resolved]
  - Oropharyngeal pain [Unknown]
  - Insomnia [Unknown]
  - Cough [Unknown]
  - Chest pain [Unknown]
  - Blister [Unknown]
  - Seizure [Unknown]
  - Dizziness [Recovered/Resolved]
  - Malaise [Recovering/Resolving]
  - Dysstasia [Unknown]

NARRATIVE: CASE EVENT DATE: 20130912
